FAERS Safety Report 6854361-4 (Version None)
Quarter: 2010Q3

REPORT INFORMATION
  Report Type: 
  Country: None (occurrence: None)
  Receive Date: 20100717
  Receipt Date: 20080102
  Transmission Date: 20110219
  Serious: No
  Sender: FDA-Public Use
  Company Number: US-PFIZER INC-2008001758

PATIENT
  Sex: Female
  Weight: 77.3 kg

DRUGS (2)
  1. CHANTIX [Suspect]
     Indication: SMOKING CESSATION THERAPY
     Dates: start: 20070902, end: 20071225
  2. HERBAL PREPARATION [Concomitant]

REACTIONS (4)
  - ANGER [None]
  - FLATULENCE [None]
  - NAUSEA [None]
  - SLEEP DISORDER [None]
